FAERS Safety Report 5751075-9 (Version None)
Quarter: 2008Q2

REPORT INFORMATION
  Report Type: 
  Country: None (occurrence: None)
  Receive Date: 20080528
  Receipt Date: 20080519
  Transmission Date: 20081010
  Serious: Yes (Hospitalization)
  Sender: FDA-Public Use
  Company Number: JP-SANOFI-SYNTHELABO-A01200802223

PATIENT
  Sex: Female

DRUGS (3)
  1. RESLIN [Concomitant]
     Indication: DEPRESSION
     Route: 048
     Dates: start: 20071227, end: 20071231
  2. RESLIN [Concomitant]
     Route: 048
     Dates: start: 20080101, end: 20080126
  3. MYSLEE [Suspect]
     Indication: INSOMNIA
     Route: 048
     Dates: start: 20020523, end: 20080128

REACTIONS (3)
  - ALTERED STATE OF CONSCIOUSNESS [None]
  - DELIRIUM [None]
  - RESTLESSNESS [None]
